FAERS Safety Report 10032231 (Version 1)
Quarter: 2014Q1

REPORT INFORMATION
  Report Type: Spontaneous
  Country: GB (occurrence: GB)
  Receive Date: 20140324
  Receipt Date: 20140324
  Transmission Date: 20141002
  Serious: Yes (Other)
  Sender: FDA-Public Use
  Company Number: GB-PFIZER INC-2014081785

PATIENT
  Age: 22 Year
  Sex: Male
  Weight: 145 kg

DRUGS (3)
  1. AMLODIPINE BESILATE [Suspect]
     Dosage: UNK
     Dates: start: 20140304
  2. CETIRIZINE [Concomitant]
     Dosage: UNK
     Dates: start: 20140310
  3. ORLISTAT [Concomitant]
     Dosage: UNK
     Dates: start: 20140214

REACTIONS (2)
  - Urticaria [Recovered/Resolved]
  - Swollen tongue [Recovered/Resolved]
